FAERS Safety Report 7438920-6 (Version None)
Quarter: 2011Q2

REPORT INFORMATION
  Report Type: 
  Country: None (occurrence: None)
  Receive Date: 20110426
  Receipt Date: 20110414
  Transmission Date: 20111010
  Serious: Yes (Death)
  Sender: FDA-Public Use
  Company Number: GB-GENENTECH-317035

PATIENT
  Sex: Female

DRUGS (2)
  1. LOPERAMIDE [Concomitant]
     Indication: PRODUCT USED FOR UNKNOWN INDICATION
  2. LUCENTIS [Suspect]
     Indication: PRODUCT USED FOR UNKNOWN INDICATION
     Dosage: UNK DF, UNK
     Route: 031

REACTIONS (4)
  - CIRCULATORY COLLAPSE [None]
  - HYPERTENSION [None]
  - DEATH [None]
  - RECTAL CANCER [None]
